FAERS Safety Report 10256580 (Version 1)
Quarter: 2014Q2

REPORT INFORMATION
  Report Type: Spontaneous
  Country: GB (occurrence: GB)
  Receive Date: 20140624
  Receipt Date: 20140624
  Transmission Date: 20141212
  Serious: Yes (Other)
  Sender: FDA-Public Use
  Company Number: PHHY2014GB073521

PATIENT
  Age: 19 Year
  Sex: Male

DRUGS (1)
  1. RAMIPRIL [Suspect]
     Dates: start: 20140507

REACTIONS (1)
  - Muscle spasms [Unknown]
